FAERS Safety Report 24911222 (Version 3)
Quarter: 2025Q1

REPORT INFORMATION
  Report Type: Report from Study
  Country: DE (occurrence: DE)
  Receive Date: 20250131
  Receipt Date: 20250304
  Transmission Date: 20250408
  Serious: Yes (Other)
  Sender: EXELIXIS
  Company Number: DE-IPSEN Group, Research and Development-2025-01269

PATIENT

DRUGS (13)
  1. CABOZANTINIB [Suspect]
     Active Substance: CABOZANTINIB
     Indication: Thyroid cancer
     Dosage: 20 MG, QD, SECOND LINE THERAPY
     Route: 065
     Dates: start: 20230705, end: 20240207
  2. TORSEMIDE [Concomitant]
     Active Substance: TORSEMIDE
     Dosage: 5 MG, QD
  3. METHYLDOPA [Concomitant]
     Active Substance: METHYLDOPA
     Dosage: 500 MG, QD
  4. INDAPAMIDE\PERINDOPRIL [Concomitant]
     Active Substance: INDAPAMIDE\PERINDOPRIL
     Dosage: 25 MG, QD, DAILY
  5. INDAPAMIDE\PERINDOPRIL [Concomitant]
     Active Substance: INDAPAMIDE\PERINDOPRIL
     Dosage: 5 MG, BID, TWICE A DAILY
  6. HYDROCORTISONE [Concomitant]
     Active Substance: HYDROCORTISONE
  7. LEVOTHYROXINE [Concomitant]
     Active Substance: LEVOTHYROXINE
  8. LEVOTHYROXINE [Concomitant]
     Active Substance: LEVOTHYROXINE
  9. ALFACALCIDOL [Concomitant]
     Active Substance: ALFACALCIDOL
     Dosage: 1 UG, QD
  10. RANEXA [Concomitant]
     Active Substance: RANOLAZINE
     Dosage: 375 UG, QD
  11. FENOTEROL [Concomitant]
     Active Substance: FENOTEROL
  12. BEROTEC [Concomitant]
     Active Substance: FENOTEROL HYDROBROMIDE
  13. ESOMEPRAZOLE [Concomitant]
     Active Substance: ESOMEPRAZOLE

REACTIONS (6)
  - General physical health deterioration [Not Recovered/Not Resolved]
  - Malignant neoplasm progression [Not Recovered/Not Resolved]
  - Toxicity to various agents [Not Recovered/Not Resolved]
  - Fatigue [Not Recovered/Not Resolved]
  - Decreased appetite [Not Recovered/Not Resolved]
  - Weight decreased [Not Recovered/Not Resolved]

NARRATIVE: CASE EVENT DATE: 20240207
